FAERS Safety Report 19645844 (Version 3)
Quarter: 2021Q3

REPORT INFORMATION
  Report Type: Spontaneous
  Country: US (occurrence: US)
  Receive Date: 20210802
  Receipt Date: 20210928
  Transmission Date: 20211014
  Serious: No
  Sender: FDA-Public Use
  Company Number: NVSC2021US173368

PATIENT
  Age: 48 Year
  Sex: Female
  Weight: 64.4 kg

DRUGS (2)
  1. COMBIPATCH [Suspect]
     Active Substance: ESTRADIOL\NORETHINDRONE ACETATE
     Indication: NIGHT SWEATS
     Dosage: 2 DF, QW (0.05/0.14 MG)
     Route: 062
     Dates: start: 202010
  2. CLARITIN?D NOS [Concomitant]
     Active Substance: LORATADINE\PSEUDOEPHEDRINE SULFATE
     Indication: PRODUCT USED FOR UNKNOWN INDICATION
     Dosage: UNK
     Route: 065

REACTIONS (7)
  - Application site urticaria [Not Recovered/Not Resolved]
  - Application site pain [Unknown]
  - Application site erythema [Not Recovered/Not Resolved]
  - Application site pruritus [Unknown]
  - Application site irritation [Not Recovered/Not Resolved]
  - Application site rash [Unknown]
  - Product administered at inappropriate site [Unknown]

NARRATIVE: CASE EVENT DATE: 20210720
